FAERS Safety Report 8765220 (Version 1)
Quarter: 2012Q4

REPORT INFORMATION
  Report Type: 
  Country: US (occurrence: US)
  Receive Date: 20120902
  Receipt Date: 20120902
  Transmission Date: 20130627
  Serious: No
  Sender: FDA-Public Use
  Company Number: US-PFIZER INC-2012215203

PATIENT
  Age: 46 Year
  Sex: Female
  Weight: 101.59 kg

DRUGS (10)
  1. CHANTIX [Suspect]
     Indication: SMOKING CESSATION THERAPY
     Dosage: 0.5 mg, 1x/day
     Route: 048
     Dates: start: 20120614, end: 2012
  2. CHANTIX [Suspect]
     Dosage: UNK
     Route: 048
     Dates: start: 2012, end: 201208
  3. NEURONTIN [Concomitant]
     Indication: NERVOUS SYSTEM DISORDER
     Dosage: UNK
  4. SPIRIVA [Concomitant]
     Indication: DYSPNOEA
     Dosage: UNK
  5. ADVAIR [Concomitant]
     Indication: DYSPNOEA
     Dosage: UNK
  6. LISINOPRIL W/HYDROCHLOROTHIAZIDE [Concomitant]
     Indication: HYPERTENSION
     Dosage: UNK
  7. METFORMIN [Concomitant]
     Indication: DIABETES MELLITUS
     Dosage: UNK
  8. FLEXERIL [Concomitant]
     Indication: INTERVERTEBRAL DISC DISORDER
     Dosage: UNK
  9. FLEXERIL [Concomitant]
     Indication: MYELOPATHY
  10. HYDROCODONE W/ACETAMINOPHEN [Concomitant]
     Indication: PAIN
     Dosage: UNK, as needed

REACTIONS (1)
  - Drug ineffective [Unknown]
